FAERS Safety Report 17504571 (Version 3)
Quarter: 2022Q3

REPORT INFORMATION
  Report Type: Spontaneous
  Country: US (occurrence: US)
  Receive Date: 20200305
  Receipt Date: 20220923
  Transmission Date: 20221027
  Serious: Yes (Hospitalization, Other)
  Sender: FDA-Public Use
  Company Number: US-PFIZER INC-2016474893

PATIENT
  Age: 88 Year
  Sex: Female

DRUGS (20)
  1. IBRANCE [Suspect]
     Active Substance: PALBOCICLIB
     Indication: Breast cancer female
     Dosage: 125 MG, UNK
  2. IBRANCE [Suspect]
     Active Substance: PALBOCICLIB
     Dosage: 75 MG
  3. VIBRAMYCIN [Suspect]
     Active Substance: DOXYCYCLINE
     Dosage: 100 MG
  4. FEMARA [Concomitant]
     Active Substance: LETROZOLE
     Dosage: 2.5 MG, UNK
  5. ZOCOR [Concomitant]
     Active Substance: SIMVASTATIN
     Dosage: 10 MG, UNK
  6. PREVIDENT [Concomitant]
     Active Substance: SODIUM FLUORIDE
     Indication: Dry mouth
     Dosage: UNK, (PREVIDENT 5000 DRY MOUTH 4.1 % GEL)
  7. TUMS [Concomitant]
     Active Substance: CALCIUM CARBONATE
     Dosage: 500 MG, UNK
  8. ADVIL [Concomitant]
     Active Substance: IBUPROFEN
     Dosage: 400 MG, UNK
  9. MOTRIN [Concomitant]
     Active Substance: IBUPROFEN
     Dosage: 400 MG, UNK
  10. MAGNESIUM OXIDE [Concomitant]
     Active Substance: MAGNESIUM OXIDE
     Dosage: 241.3 MG, UNK (400 (241.3 MG) MG)
  11. K-DUR [Concomitant]
     Active Substance: POTASSIUM CHLORIDE
     Dosage: 20 MEQ, UNK
  12. KLOR-CON [Concomitant]
     Active Substance: POTASSIUM CHLORIDE
     Dosage: 20 MEQ, UNK
  13. KLOR-CON [Concomitant]
     Active Substance: POTASSIUM CHLORIDE
     Dosage: UNK
  14. TYLENOL [Concomitant]
     Active Substance: ACETAMINOPHEN
     Dosage: 325 MG, UNK
  15. TYLENOL [Concomitant]
     Active Substance: ACETAMINOPHEN
     Dosage: UNK
  16. ZOFRAN [Concomitant]
     Active Substance: ONDANSETRON HYDROCHLORIDE
     Dosage: 8 MG, UNK
  17. ASPIRIN [Concomitant]
     Active Substance: ASPIRIN
     Dosage: 325 MG, UNK
  18. SYNTHROID [Concomitant]
     Active Substance: LEVOTHYROXINE SODIUM
     Dosage: 50 UG, UNK
  19. OSCAL 500+D [Concomitant]
     Dosage: UNK, (CALCIUM VITAMIN D (OSCAL-500) 500-200 MG UNIT PER TABLET)
  20. PROCHLORPERAZINE EDISYLATE [Concomitant]
     Active Substance: PROCHLORPERAZINE EDISYLATE
     Dosage: 10 MG, UNK

REACTIONS (1)
  - Neutropenia [Recovered/Resolved]
